FAERS Safety Report 14900100 (Version 1)
Quarter: 2018Q2

REPORT INFORMATION
  Report Type: Report from Study
  Country: None (occurrence: US)
  Receive Date: 20180516
  Receipt Date: 20180516
  Transmission Date: 20180711
  Serious: Yes (Hospitalization, Other)
  Sender: FDA-Public Use
  Company Number: US-ABBVIE-17K-163-2171516-00

PATIENT
  Age: 65 Year
  Sex: Male
  Weight: 87.17 kg

DRUGS (26)
  1. IRON [Concomitant]
     Active Substance: IRON
     Indication: ANAEMIA
     Route: 042
  2. EPLERENONE. [Concomitant]
     Active Substance: EPLERENONE
     Indication: HYPERALDOSTERONISM
  3. TIZANIDINE. [Concomitant]
     Active Substance: TIZANIDINE
     Indication: SLEEP DISORDER THERAPY
  4. HUMIRA [Suspect]
     Active Substance: ADALIMUMAB
     Dosage: DAY 15
     Route: 058
     Dates: start: 20171110, end: 20171110
  5. HUMIRA [Suspect]
     Active Substance: ADALIMUMAB
     Route: 058
     Dates: start: 20180427
  6. IRON [Concomitant]
     Active Substance: IRON
     Indication: SMALL INTESTINAL ULCER HAEMORRHAGE
  7. TIZANIDINE. [Concomitant]
     Active Substance: TIZANIDINE
     Indication: MUSCLE RELAXANT THERAPY
  8. FOLIC ACID. [Concomitant]
     Active Substance: FOLIC ACID
     Indication: CROHN^S DISEASE
  9. VITAMIN C [Concomitant]
     Active Substance: ASCORBIC ACID
     Indication: VITAMIN SUPPLEMENTATION
  10. MORPHINE SULFATE. [Concomitant]
     Active Substance: MORPHINE SULFATE
     Indication: HYPERALDOSTERONISM
  11. TOPIRAMATE. [Concomitant]
     Active Substance: TOPIRAMATE
     Indication: HYPERALDOSTERONISM
  12. FAMOTIDINE. [Concomitant]
     Active Substance: FAMOTIDINE
     Indication: GASTROOESOPHAGEAL REFLUX DISEASE
  13. PROCHLORPERAZINE. [Concomitant]
     Active Substance: PROCHLORPERAZINE
     Indication: NAUSEA
  14. FISH OIL [Concomitant]
     Active Substance: FISH OIL
     Indication: BLOOD CHOLESTEROL INCREASED
  15. PRAVASTATIN. [Concomitant]
     Active Substance: PRAVASTATIN
     Indication: BLOOD CHOLESTEROL INCREASED
  16. BYSTOLIC [Concomitant]
     Active Substance: NEBIVOLOL HYDROCHLORIDE
     Indication: HYPERTENSION
  17. LYRICA [Concomitant]
     Active Substance: PREGABALIN
     Indication: FIBROMYALGIA
  18. OXYCODONE [Concomitant]
     Active Substance: OXYCODONE
     Indication: FIBROMYALGIA
  19. TOPIRAMATE. [Concomitant]
     Active Substance: TOPIRAMATE
     Indication: FIBROMYALGIA
  20. TREXOL [Concomitant]
     Indication: CROHN^S DISEASE
  21. HUMIRA [Suspect]
     Active Substance: ADALIMUMAB
     Indication: CROHN^S DISEASE
     Dosage: DAY ONE
     Route: 058
     Dates: start: 20171027, end: 20171027
  22. HUMIRA [Suspect]
     Active Substance: ADALIMUMAB
     Route: 058
     Dates: start: 201711, end: 20180413
  23. OXYCODONE [Concomitant]
     Active Substance: OXYCODONE
     Indication: HYPERALDOSTERONISM
  24. TESTOSTERONE CYPIONATE. [Concomitant]
     Active Substance: TESTOSTERONE CYPIONATE
     Indication: BLOOD TESTOSTERONE DECREASED
  25. FENOFIBRATE. [Concomitant]
     Active Substance: FENOFIBRATE
     Indication: BLOOD CHOLESTEROL INCREASED
  26. MORPHINE SULFATE. [Concomitant]
     Active Substance: MORPHINE SULFATE
     Indication: FIBROMYALGIA
     Dosage: EXTENDED-RELEASE

REACTIONS (26)
  - Dehydration [Recovered/Resolved]
  - Feeding disorder [Recovered/Resolved]
  - Abdominal distension [Recovered/Resolved]
  - Haematochezia [Unknown]
  - Fatigue [Unknown]
  - Asthenia [Recovering/Resolving]
  - Gastrointestinal pain [Unknown]
  - Decreased appetite [Recovered/Resolved]
  - Weight decreased [Recovered/Resolved]
  - Anxiety [Not Recovered/Not Resolved]
  - Nausea [Recovered/Resolved]
  - Blood iron decreased [Not Recovered/Not Resolved]
  - Gastrointestinal sounds abnormal [Recovering/Resolving]
  - Insomnia [Recovering/Resolving]
  - Abdominal pain [Recovered/Resolved]
  - Abdominal pain [Recovered/Resolved]
  - Fluid intake reduced [Recovered/Resolved]
  - Upper respiratory tract infection [Recovered/Resolved]
  - Small intestinal stenosis [Recovered/Resolved]
  - Fear [Unknown]
  - Vomiting projectile [Recovered/Resolved]
  - Rectal haemorrhage [Recovering/Resolving]
  - Malnutrition [Recovering/Resolving]
  - Small intestinal ulcer haemorrhage [Not Recovered/Not Resolved]
  - Fluid overload [Recovered/Resolved]
  - Depressed mood [Unknown]

NARRATIVE: CASE EVENT DATE: 2017
